FAERS Safety Report 7961792-8 (Version None)
Quarter: 2011Q4

REPORT INFORMATION
  Report Type: 
  Country: None (occurrence: None)
  Receive Date: 20111207
  Receipt Date: 20111207
  Transmission Date: 20120403
  Serious: Yes (Death)
  Sender: FDA-Public Use
  Company Number: None

PATIENT
  Age: 86 Year
  Sex: Female
  Weight: 44.452 kg

DRUGS (1)
  1. PRADAXA [Suspect]
     Indication: ATRIAL FIBRILLATION
     Dosage: 75MG 2 CAPSULE -150MG-
     Route: 048
     Dates: start: 20111001, end: 20111121

REACTIONS (13)
  - INTERNATIONAL NORMALISED RATIO INCREASED [None]
  - PLEURAL EFFUSION [None]
  - CONTUSION [None]
  - COAGULOPATHY [None]
  - LACERATION [None]
  - SUBDURAL HAEMATOMA [None]
  - SUBARACHNOID HAEMORRHAGE [None]
  - CERVICAL VERTEBRAL FRACTURE [None]
  - BRAIN CONTUSION [None]
  - HAEMOGLOBIN DECREASED [None]
  - CEREBRAL HAEMATOMA [None]
  - ROAD TRAFFIC ACCIDENT [None]
  - HEAD INJURY [None]
